FAERS Safety Report 4959995-X (Version None)
Quarter: 2006Q1

REPORT INFORMATION
  Report Type: 
  Country: None (occurrence: None)
  Receive Date: 20060327
  Receipt Date: 20060313
  Transmission Date: 20060701
  Serious: Yes (Hospitalization, Other)
  Sender: FDA-Public Use
  Company Number: S04-CAN-07580-02

PATIENT
  Sex: Female
  Weight: 3.69 kg

DRUGS (14)
  1. CELEXA [Suspect]
     Indication: DEPRESSION
     Dosage: 50 MG QD BF
     Route: 063
     Dates: start: 20051101, end: 20051114
  2. CELEXA [Suspect]
     Indication: DEPRESSION
     Dosage: 30 MG QD TRANSPLACENTAL
     Route: 064
     Dates: start: 20041104, end: 20050815
  3. CELEXA [Suspect]
     Indication: DEPRESSION
     Dosage: 30 MG QD BF
     Route: 063
     Dates: start: 20050815, end: 20051001
  4. CELEXA [Suspect]
     Indication: DEPRESSION
     Dosage: 40 MG QD BF
     Route: 063
     Dates: start: 20051001, end: 20051031
  5. CELEXA [Suspect]
     Indication: DEPRESSION
     Dosage: 40 MG QD BF
     Route: 063
     Dates: start: 20051115, end: 20051101
  6. CELEXA [Suspect]
     Indication: DEPRESSION
     Dosage: 30 MG QD BF
     Route: 063
     Dates: start: 20051101, end: 20051101
  7. CELEXA [Suspect]
     Indication: DEPRESSION
     Dosage: 20 MG QD BF
     Route: 063
     Dates: start: 20051101, end: 20051101
  8. CELEXA [Suspect]
     Indication: ILL-DEFINED DISORDER
     Dosage: 10 MG QD BF
     Route: 063
     Dates: start: 20051101, end: 20051101
  9. MULTIVITAMIN WITH FOLIC ACID [Concomitant]
  10. DEMEROL [Concomitant]
  11. EPIDURAL  (N0S) [Concomitant]
  12. IRON SUPPLEMENT [Concomitant]
  13. PROSTAGLANDIN GEL [Concomitant]
  14. PENICILLIN-G (PENICILLIN  G) [Concomitant]

REACTIONS (8)
  - APGAR SCORE LOW [None]
  - DRUG EXPOSURE DURING PREGNANCY [None]
  - DRUG EXPOSURE VIA BREAST MILK [None]
  - LABOUR COMPLICATION [None]
  - MECONIUM IN AMNIOTIC FLUID [None]
  - NEONATAL RESPIRATORY DEPRESSION [None]
  - POSTMATURE BABY [None]
  - PRECIPITATE LABOUR [None]
